FAERS Safety Report 12411559 (Version 1)
Quarter: 2016Q2

REPORT INFORMATION
  Report Type: Spontaneous
  Country: JP (occurrence: JP)
  Receive Date: 20160527
  Receipt Date: 20160527
  Transmission Date: 20160815
  Serious: Yes (Death, Other)
  Sender: FDA-Public Use
  Company Number: JP-GLAXOSMITHKLINE-JP2016JPN072979

PATIENT
  Sex: Female

DRUGS (1)
  1. FLOLAN [Suspect]
     Active Substance: EPOPROSTENOL SODIUM
     Indication: PULMONARY HYPERTENSION
     Route: 042

REACTIONS (8)
  - Anti-neutrophil cytoplasmic antibody positive vasculitis [Unknown]
  - Diarrhoea [Unknown]
  - Gastric polyps [Unknown]
  - Gastric mucosal hypertrophy [Unknown]
  - Sudden death [Fatal]
  - Renal impairment [Unknown]
  - Dehydration [Unknown]
  - Pancytopenia [Unknown]
